FAERS Safety Report 13481661 (Version 1)
Quarter: 2017Q2

REPORT INFORMATION
  Report Type: Report from Study
  Country: GB (occurrence: GB)
  Receive Date: 20170425
  Receipt Date: 20170425
  Transmission Date: 20170830
  Serious: Yes (Hospitalization)
  Sender: FDA-Public Use
  Company Number: GB-ROCHE-1923862

PATIENT
  Sex: Female

DRUGS (1)
  1. ROACTEMRA [Suspect]
     Active Substance: TOCILIZUMAB
     Indication: RHEUMATOID ARTHRITIS
     Route: 058
     Dates: start: 20151015

REACTIONS (4)
  - Rib fracture [Unknown]
  - Dyspnoea [Unknown]
  - Fall [Unknown]
  - Pneumothorax [Unknown]

NARRATIVE: CASE EVENT DATE: 20170414
